FAERS Safety Report 9050748 (Version 1)
Quarter: 2013Q1

REPORT INFORMATION
  Report Type: Spontaneous
  Country: US (occurrence: US)
  Receive Date: 20130205
  Receipt Date: 20130205
  Transmission Date: 20140127
  Serious: No
  Sender: FDA-Public Use
  Company Number: US-009507513-1301USA014501

PATIENT
  Age: 79 Year
  Sex: Female

DRUGS (2)
  1. HYZAAR [Suspect]
     Indication: HYPERTENSION
     Dosage: 100MG/25 MG, FREQUENCY UNDISCLOSED
     Route: 048
  2. LISINOPRIL [Concomitant]
     Route: 048

REACTIONS (1)
  - Therapeutic response decreased [Unknown]
